FAERS Safety Report 6008144-8 (Version None)
Quarter: 2008Q4

REPORT INFORMATION
  Report Type: 
  Country: None (occurrence: None)
  Receive Date: 20081217
  Receipt Date: 20081030
  Transmission Date: 20090506
  Serious: No
  Sender: FDA-Public Use
  Company Number: US-ASTRAZENECA-2008UW14185

PATIENT
  Age: 69 Year
  Sex: Male
  Weight: 108.9 kg

DRUGS (8)
  1. CRESTOR [Suspect]
     Route: 048
  2. CRESTOR [Suspect]
     Route: 048
     Dates: start: 20080628
  3. LITHIUM [Concomitant]
  4. TOPROL-XL [Concomitant]
     Route: 048
  5. LEVOTHYROXINE SODIUM [Concomitant]
  6. NAPROXEN [Concomitant]
  7. GLUCOSAMINE [Concomitant]
  8. LISINOPRIL [Concomitant]

REACTIONS (3)
  - ASTHENIA [None]
  - PAIN IN EXTREMITY [None]
  - RASH [None]
